FAERS Safety Report 4485584-X (Version None)
Quarter: 2004Q4

REPORT INFORMATION
  Report Type: 
  Country: None (occurrence: None)
  Receive Date: 20041021
  Receipt Date: 20041004
  Transmission Date: 20050328
  Serious: Yes (Death, Hospitalization, Other)
  Sender: FDA-Public Use
  Company Number: ATO-04-0785

PATIENT
  Age: 77 Year
  Sex: Female

DRUGS (7)
  1. TRISENOX [Suspect]
     Indication: ACUTE PROMYELOCYTIC LEUKAEMIA
     Dosage: 10 MG, QD 5X/WK IVI
     Route: 042
     Dates: start: 20040611, end: 20040917
  2. VIOXX [Concomitant]
  3. REMERON [Concomitant]
  4. CENTRUM SILVER (ASCORBIC ACID, TOCOPHERYL ACETATE, RETINOL, ZINC, CALC [Concomitant]
  5. CALTRAE (CALCIUM CARBONATE) [Concomitant]
  6. FOLIC ACID [Concomitant]
  7. ACETYLSALICYLIC ACID SRT [Concomitant]

REACTIONS (3)
  - ANXIETY [None]
  - CATHETER SEPSIS [None]
  - GASTROINTESTINAL HAEMORRHAGE [None]
